FAERS Safety Report 9220071 (Version 2)
Quarter: 2013Q3

REPORT INFORMATION
  Report Type: Report from Study
  Country: BR (occurrence: BR)
  Receive Date: 20130409
  Receipt Date: 20130703
  Transmission Date: 20140515
  Serious: Yes (Disabling, Other)
  Sender: FDA-Public Use
  Company Number: BR-ROCHE-1210739

PATIENT
  Age: 24 Year
  Sex: Female
  Weight: 32 kg

DRUGS (6)
  1. ACTEMRA [Suspect]
     Indication: RHEUMATOID ARTHRITIS
     Route: 065
     Dates: start: 201212
  2. ACTEMRA [Suspect]
     Route: 065
     Dates: start: 201301
  3. NIMESULIDE [Concomitant]
  4. DIPYRONE [Concomitant]
  5. PANTOPRAZOLE [Concomitant]
  6. AEROLIN [Concomitant]

REACTIONS (4)
  - Joint swelling [Recovered/Resolved]
  - Malaise [Unknown]
  - Mobility decreased [Recovered/Resolved]
  - Drug ineffective [Unknown]
